FAERS Safety Report 9261864 (Version 1)
Quarter: 2013Q2

REPORT INFORMATION
  Report Type: Spontaneous
  Country: US (occurrence: US)
  Receive Date: 20130429
  Receipt Date: 20130429
  Transmission Date: 20140414
  Serious: Yes (Other)
  Sender: FDA-Public Use
  Company Number: CHPA2013US007317

PATIENT
  Age: 69 Year
  Sex: Female

DRUGS (2)
  1. PREVACID 24HR 15MG [Suspect]
     Indication: DYSPEPSIA
     Dosage: 15 MG, QD
     Route: 048
     Dates: start: 20121130
  2. PREVACID 24HR 15MG [Suspect]
     Indication: OESOPHAGEAL DISORDER

REACTIONS (4)
  - Breast cancer metastatic [Not Recovered/Not Resolved]
  - Odynophagia [Unknown]
  - Off label use [Unknown]
  - Incorrect drug administration duration [Unknown]
